FAERS Safety Report 5572375-1 (Version None)
Quarter: 2007Q4

REPORT INFORMATION
  Report Type: 
  Country: None (occurrence: None)
  Receive Date: 20071219
  Receipt Date: 20071203
  Transmission Date: 20080405
  Serious: Yes (Death, Life-Threatening, Other)
  Sender: FDA-Public Use
  Company Number: 64888

PATIENT
  Age: 65 Year
  Sex: Female
  Weight: 75 kg

DRUGS (11)
  1. IBUPROFEN [Suspect]
     Dosage: 1200 MG/ORAL
     Route: 048
     Dates: end: 20071023
  2. ASPIRIN [Suspect]
     Dosage: 75MG/ORAL
     Route: 048
     Dates: start: 20060324
  3. CHLORPROMAZINE [Concomitant]
  4. CO-CODAMOL (CODEINE PHOSPHATE AND PARACETAMOL) [Concomitant]
  5. DIAZEPAM [Concomitant]
  6. DOSULEPIN [Concomitant]
  7. FLUPHENZAINE DECANOATE [Concomitant]
  8. LANSOPRAZOLE [Concomitant]
  9. LEVOTHYROXINE SODIUM [Concomitant]
  10. PROCYCLIDINE HYDROCHLORIDE 2MG TAB [Concomitant]
  11. QUININE [Concomitant]

REACTIONS (3)
  - GASTROINTESTINAL HAEMORRHAGE [None]
  - PERFORATED ULCER [None]
  - WRONG DRUG ADMINISTERED [None]
